FAERS Safety Report 8500255-8 (Version None)
Quarter: 2012Q3

REPORT INFORMATION
  Report Type: 
  Country: None (occurrence: None)
  Receive Date: 20120710
  Receipt Date: 20120706
  Transmission Date: 20120928
  Serious: Yes (Other)
  Sender: FDA-Public Use
  Company Number: PHHY2012GB058207

PATIENT
  Age: 68 Year
  Sex: Male

DRUGS (9)
  1. DEXAMETHASONE [Concomitant]
     Indication: METASTASES TO CENTRAL NERVOUS SYSTEM
     Dosage: 12 MG, UNK
     Route: 048
     Dates: start: 20120501
  2. MOVIPREP [Concomitant]
     Indication: CONSTIPATION
     Dosage: 1 DF, BID
     Route: 048
     Dates: start: 20120501
  3. ORAMORPH SR [Concomitant]
     Indication: PAIN
     Dosage: 20 MG, PRN
     Route: 048
     Dates: start: 20120501
  4. MS CONTIN [Concomitant]
     Indication: PAIN
     Dosage: 40 MG, BID
     Route: 048
     Dates: start: 20120501
  5. SENNA-MINT WAF [Concomitant]
     Indication: CONSTIPATION
     Dosage: 1 DF, BID
     Route: 048
     Dates: start: 20120501
  6. OMEPRAZOLE [Concomitant]
     Indication: GASTRIC DISORDER
     Dosage: 20 MG, QD
     Route: 048
     Dates: start: 20120501
  7. CYCLIZINE [Concomitant]
     Indication: NAUSEA
     Dosage: 50 MG, TID
     Route: 048
     Dates: start: 20120501
  8. ONDANSETRON [Suspect]
     Indication: NAUSEA
     Dosage: 4 MG, UNK
     Route: 048
     Dates: start: 20120618, end: 20120618
  9. DICLOFENAC SODIUM [Concomitant]
     Indication: PAIN
     Dosage: 50 MG, TID
     Route: 048
     Dates: start: 20120501

REACTIONS (4)
  - RESTLESSNESS [None]
  - AGITATION [None]
  - MUSCLE SPASMS [None]
  - TREMOR [None]
